FAERS Safety Report 12010943 (Version 5)
Quarter: 2016Q3

REPORT INFORMATION
  Report Type: Report from Study
  Country: JP (occurrence: JP)
  Receive Date: 20160205
  Receipt Date: 20160802
  Transmission Date: 20161109
  Serious: Yes (Death, Hospitalization, Other)
  Sender: FDA-Public Use
  Company Number: JP-GILEAD-2016-0196445

PATIENT
  Age: 71 Year
  Sex: Female
  Weight: 42.6 kg

DRUGS (7)
  1. SENNOSIDE                          /00571901/ [Concomitant]
     Active Substance: SENNOSIDES A AND B
     Dosage: 12 MG, 1D
     Dates: end: 20160102
  2. LOXOPROFEN [Concomitant]
     Active Substance: LOXOPROFEN
     Dosage: 120 MG, 1D
     Dates: end: 20160102
  3. ROZEREM [Concomitant]
     Active Substance: RAMELTEON
     Dosage: 8 MG, 1D
     Dates: end: 20160102
  4. AMBRISENTAN [Suspect]
     Active Substance: AMBRISENTAN
     Indication: PULMONARY ARTERIAL HYPERTENSION
     Dosage: 5 MG, QD
     Route: 048
     Dates: start: 20150924
  5. WARFARIN [Concomitant]
     Active Substance: WARFARIN
     Dosage: 1 MG, 1D
     Dates: end: 20160102
  6. MAINTATE [Concomitant]
     Active Substance: BISOPROLOL FUMARATE
     Dosage: 2.5 MG, QD
     Dates: end: 20160102
  7. FAMOTIDINE DCI [Concomitant]
     Active Substance: FAMOTIDINE
     Dosage: 10 MG, 1D
     Dates: end: 20160102

REACTIONS (3)
  - Blood pressure decreased [Recovering/Resolving]
  - Sepsis [Fatal]
  - Pulmonary arterial hypertension [Fatal]

NARRATIVE: CASE EVENT DATE: 201512
